FAERS Safety Report 6550249-7 (Version None)
Quarter: 2010Q1

REPORT INFORMATION
  Report Type: 
  Country: None (occurrence: None)
  Receive Date: 20100125
  Receipt Date: 20100118
  Transmission Date: 20100710
  Serious: Yes (Death)
  Sender: FDA-Public Use
  Company Number: GB-TEVA-190573ISR

PATIENT
  Age: 41 Year
  Sex: Female
  Weight: 72 kg

DRUGS (1)
  1. CITALOPRAM [Suspect]
     Indication: DEPRESSION
     Route: 048
     Dates: start: 20081101, end: 20081201

REACTIONS (3)
  - MALAISE [None]
  - RASH [None]
  - SUDDEN CARDIAC DEATH [None]
